FAERS Safety Report 18240755 (Version 1)
Quarter: 2020Q3

REPORT INFORMATION
  Report Type: Spontaneous
  Country: US (occurrence: US)
  Receive Date: 20200905
  Receipt Date: 20200905
  Transmission Date: 20201103
  Serious: Yes (Hospitalization)
  Sender: FDA-Public Use
  Company Number: None

PATIENT
  Age: 64 Year
  Sex: Male
  Weight: 107.5 kg

DRUGS (4)
  1. CIPROFLOXACIN. [Suspect]
     Active Substance: CIPROFLOXACIN
     Indication: URINARY TRACT INFECTION
     Route: 048
     Dates: start: 20200831, end: 20200831
  2. CEFDINIR. [Suspect]
     Active Substance: CEFDINIR
     Indication: URINARY TRACT INFECTION
     Route: 048
     Dates: start: 20200831, end: 20200831
  3. CEFDINIR. [Concomitant]
     Active Substance: CEFDINIR
     Dates: start: 20200831, end: 20200831
  4. CIPROFLOXACIN. [Concomitant]
     Active Substance: CIPROFLOXACIN
     Dates: start: 20200831, end: 20200831

REACTIONS (3)
  - Arthropod-borne disease [None]
  - Rash erythematous [None]
  - Rash macular [None]

NARRATIVE: CASE EVENT DATE: 20200831
